FAERS Safety Report 25367332 (Version 1)
Quarter: 2025Q2

REPORT INFORMATION
  Report Type: Spontaneous
  Country: US (occurrence: US)
  Receive Date: 20250528
  Receipt Date: 20250528
  Transmission Date: 20250716
  Serious: No
  Sender: Kenvue
  Company Number: US-KENVUE-20250504786

PATIENT
  Age: 37 Year
  Sex: Male

DRUGS (1)
  1. MENS ROGAINE EXTRA STRENGTH [Suspect]
     Active Substance: MINOXIDIL
     Indication: Hair growth abnormal
     Dosage: UNK UNK, ONCE A DAY
     Route: 061
     Dates: start: 20250501

REACTIONS (5)
  - Application site papules [Unknown]
  - Application site inflammation [Unknown]
  - Application site pruritus [Unknown]
  - Application site pain [Unknown]
  - Inappropriate schedule of product administration [Unknown]

NARRATIVE: CASE EVENT DATE: 20250501
